FAERS Safety Report 7913481-3 (Version None)
Quarter: 2011Q4

REPORT INFORMATION
  Report Type: 
  Country: None (occurrence: None)
  Receive Date: 20111110
  Receipt Date: 20111027
  Transmission Date: 20120403
  Serious: Yes (Life-Threatening)
  Sender: FDA-Public Use
  Company Number: 2011AP001700

PATIENT
  Age: 49 Year
  Sex: Female

DRUGS (4)
  1. ZOPICLONE (ZOPICLONE) [Concomitant]
  2. ACETAMINOPHEN [Concomitant]
  3. TRAMADOL HYDROCHLORIDE [Concomitant]
  4. LEFLUNOMIDE [Suspect]
     Indication: PSORIATIC ARTHROPATHY
     Dosage: 20 MG;QD; PO

REACTIONS (3)
  - ARTHRALGIA [None]
  - RENAL CELL CARCINOMA STAGE III [None]
  - BONE LESION [None]
